FAERS Safety Report 8765416 (Version 1)
Quarter: 2012Q4

REPORT INFORMATION
  Report Type: 
  Country: US (occurrence: US)
  Receive Date: 20120831
  Receipt Date: 20120831
  Transmission Date: 20130627
  Serious: No
  Sender: FDA-Public Use
  Company Number: US-JNJFOC-20120812299

PATIENT
  Age: 19 None
  Sex: Male

DRUGS (1)
  1. INVEGA SUSTENNA [Suspect]
     Indication: PRODUCT USED FOR UNKNOWN INDICATION
     Route: 030
     Dates: start: 201208, end: 201208

REACTIONS (2)
  - Vision blurred [Not Recovered/Not Resolved]
  - Drug dose omission [Not Recovered/Not Resolved]
